FAERS Safety Report 9493975 (Version 1)
Quarter: 2013Q3

REPORT INFORMATION
  Report Type: Spontaneous
  Country: DE (occurrence: DE)
  Receive Date: 20130903
  Receipt Date: 20130903
  Transmission Date: 20140515
  Serious: Yes (Other)
  Sender: FDA-Public Use
  Company Number: DE-ROCHE-1269369

PATIENT
  Sex: Female

DRUGS (2)
  1. AVASTIN [Suspect]
     Indication: BREAST CANCER METASTATIC
     Dosage: 14 CYCLES WITHIN 13 MONTHS
     Route: 042
  2. XELODA [Suspect]
     Indication: BREAST CANCER METASTATIC
     Route: 048

REACTIONS (1)
  - Dementia [Unknown]
